FAERS Safety Report 9507116 (Version 1)
Quarter: 2013Q3

REPORT INFORMATION
  Report Type: Spontaneous
  Country: DE (occurrence: None)
  Receive Date: 20130904
  Receipt Date: 20130904
  Transmission Date: 20140515
  Serious: Yes (Other)
  Sender: FDA-Public Use
  Company Number: SYM-2013-10228

PATIENT
  Age: 45 Year
  Sex: Female

DRUGS (1)
  1. TARGRETIN [Suspect]
     Indication: T-CELL LYMPHOMA

REACTIONS (4)
  - Neoplasm progression [None]
  - No therapeutic response [None]
  - Skin mass [None]
  - Mycosis fungoides [None]
